FAERS Safety Report 21638220 (Version 1)
Quarter: 2022Q4

REPORT INFORMATION
  Report Type: Spontaneous
  Country: PL (occurrence: PL)
  Receive Date: 20221124
  Receipt Date: 20221124
  Transmission Date: 20230112
  Serious: Yes (Hospitalization)
  Sender: FDA-Public Use
  Company Number: PL-JNJFOC-20221152344

PATIENT
  Age: 42 Year
  Sex: Male

DRUGS (19)
  1. TRAMADOL HYDROCHLORIDE [Interacting]
     Active Substance: TRAMADOL HYDROCHLORIDE
     Indication: Product used for unknown indication
     Route: 065
  2. ACETAMINOPHEN\TRAMADOL [Suspect]
     Active Substance: ACETAMINOPHEN\TRAMADOL
     Indication: Abdominal pain upper
     Dosage: 1 DOSAGE FORM, EVERY 8 HRS
     Route: 048
  3. ACETAMINOPHEN\TRAMADOL [Suspect]
     Active Substance: ACETAMINOPHEN\TRAMADOL
     Indication: Myalgia
     Route: 065
  4. SERTRALINE [Interacting]
     Active Substance: SERTRALINE HYDROCHLORIDE
     Indication: Depression
     Route: 065
  5. NEBIVOLOL HYDROCHLORIDE [Interacting]
     Active Substance: NEBIVOLOL HYDROCHLORIDE
     Indication: Acute coronary syndrome
     Dosage: 5 MILLIGRAM, 1/DAY
     Route: 065
  6. ACETAMINOPHEN [Interacting]
     Active Substance: ACETAMINOPHEN
     Indication: Myalgia
     Dosage: 4 GRAM, 1/DAY
     Route: 065
  7. ACETAMINOPHEN [Interacting]
     Active Substance: ACETAMINOPHEN
     Indication: Abdominal pain upper
  8. VORTIOXETINE [Interacting]
     Active Substance: VORTIOXETINE
     Indication: Depression
     Route: 065
  9. ASPIRIN [Suspect]
     Active Substance: ASPIRIN
     Indication: Acute coronary syndrome
     Dosage: 150 MILLIGRAM, 1/DAY
     Route: 065
  10. ZOFENOPRIL CALCIUM [Interacting]
     Active Substance: ZOFENOPRIL CALCIUM
     Indication: Acute coronary syndrome
     Dosage: 7.5 MILLIGRAM, 1/DAY
     Route: 065
  11. CLOPIDOGREL HYDROBROMIDE [Interacting]
     Active Substance: CLOPIDOGREL HYDROBROMIDE
     Indication: Acute coronary syndrome
     Dosage: 75 MILLIGRAM, 1/DAY
     Route: 065
  12. OMEPRAZOLE [Suspect]
     Active Substance: OMEPRAZOLE
     Indication: Acute coronary syndrome
     Dosage: 40 MILLIGRAM, 1/DAY
     Route: 065
  13. OMEPRAZOLE [Suspect]
     Active Substance: OMEPRAZOLE
     Dosage: 80 MILLIGRAM, 1/DAY
     Route: 065
  14. DROTAVERINE HYDROCHLORIDE [Interacting]
     Active Substance: DROTAVERINE HYDROCHLORIDE
     Indication: Abdominal pain upper
     Dosage: 80 MILLIGRAM, 1/DAY
     Route: 065
  15. MEMANTINE [Suspect]
     Active Substance: MEMANTINE
     Indication: Amnesia
     Dosage: 10 MILLIGRAM, 1/DAY
     Route: 065
  16. MEMANTINE [Suspect]
     Active Substance: MEMANTINE
     Indication: Memory impairment
  17. ITRACONAZOLE [Interacting]
     Active Substance: ITRACONAZOLE
     Indication: Onychomycosis
     Dosage: 200 MILLIGRAM, 1/DAY
     Route: 065
  18. ITRACONAZOLE [Interacting]
     Active Substance: ITRACONAZOLE
     Indication: Fungal infection
  19. BUPROPION [Interacting]
     Active Substance: BUPROPION
     Indication: Depression
     Dosage: 300 MILLIGRAM, 1/DAY
     Route: 048

REACTIONS (3)
  - Nausea [Recovered/Resolved]
  - Drug ineffective [Recovered/Resolved]
  - Drug interaction [Unknown]
